FAERS Safety Report 14588715 (Version 2)
Quarter: 2018Q1

REPORT INFORMATION
  Report Type: Spontaneous
  Country: CZ (occurrence: CZ)
  Receive Date: 20180301
  Receipt Date: 20180315
  Transmission Date: 20180509
  Serious: Yes (Other)
  Sender: FDA-Public Use
  Company Number: CZ-GLAXOSMITHKLINE-CZ2018029589

PATIENT
  Age: 28 Year
  Sex: Female

DRUGS (5)
  1. VALPROATE [Suspect]
     Active Substance: VALPROIC ACID
     Indication: EPILEPSY
     Dosage: 2X 1000 MG
     Route: 065
  2. LAMOTRIGINE. [Suspect]
     Active Substance: LAMOTRIGINE
     Indication: SEIZURE
     Dosage: 2X 150 MG
     Route: 065
  3. LEVETIRACETAM. [Suspect]
     Active Substance: LEVETIRACETAM
     Indication: EPILEPSY
     Dosage: 2X 500 MG
     Route: 065
  4. LACOSAMIDE. [Suspect]
     Active Substance: LACOSAMIDE
     Indication: PRODUCT USED FOR UNKNOWN INDICATION
     Dosage: 2X 150 MG
     Route: 065
  5. VALPROATE [Suspect]
     Active Substance: VALPROIC ACID
     Dosage: 2X 750 MG
     Route: 065

REACTIONS (7)
  - Seizure [Recovered/Resolved]
  - Weight increased [Unknown]
  - Hepatic enzyme increased [Recovered/Resolved]
  - Tremor [Unknown]
  - Headache [Recovered/Resolved]
  - Lipids abnormal [Recovered/Resolved]
  - Dizziness [Unknown]
